FAERS Safety Report 17444991 (Version 1)
Quarter: 2020Q1

REPORT INFORMATION
  Report Type: Other
  Country: CN (occurrence: CN)
  Receive Date: 20200221
  Receipt Date: 20200221
  Transmission Date: 20200409
  Serious: Yes (Other)
  Sender: FDA-Public Use
  Company Number: CN-JIANGSU HENGRUI MEDICINE CO., LTD.-2080749

PATIENT
  Age: 54 Year
  Sex: Female
  Weight: 49 kg

DRUGS (4)
  1. CISATRACURIUM BESYLATE INJECTION USP, 10 MG/5 ML (2 MG/ML) AND 200 MG/ [Suspect]
     Active Substance: CISATRACURIUM BESYLATE
     Indication: ANAESTHESIA PROCEDURE
     Route: 041
     Dates: start: 20200121, end: 20200121
  2. REMIFENTANIL HYDROCHLORIDE FOR INJECTION [Suspect]
     Active Substance: REMIFENTANIL HYDROCHLORIDE
     Route: 041
     Dates: start: 20200121, end: 20200121
  3. PROPOFOL MEDIUM AND LONG CHAIN FAT EMULSION INJECTION [Suspect]
     Active Substance: PROPOFOL
     Route: 041
     Dates: start: 20200121, end: 20200121
  4. CEFUROXIME SODIUM FOR INJECTION [Suspect]
     Active Substance: CEFUROXIME SODIUM
     Route: 041
     Dates: start: 20200121, end: 20200121

REACTIONS (1)
  - Anaphylactic shock [Recovered/Resolved]

NARRATIVE: CASE EVENT DATE: 20200121
